FAERS Safety Report 7468273-9 (Version None)
Quarter: 2011Q2

REPORT INFORMATION
  Report Type: 
  Country: None (occurrence: None)
  Receive Date: 20110509
  Receipt Date: 20110427
  Transmission Date: 20111010
  Serious: Yes (Hospitalization)
  Sender: FDA-Public Use
  Company Number: DE-CELGENEUS-062-C5013-11021487

PATIENT
  Age: 63 Year
  Sex: Female
  Weight: 70 kg

DRUGS (5)
  1. FOLSAN [Concomitant]
     Indication: PROPHYLAXIS
     Route: 048
  2. LENALIDOMIDE [Suspect]
     Indication: MANTLE CELL LYMPHOMA
     Dosage: 25 MILLIGRAM
     Route: 048
     Dates: start: 20110117, end: 20110210
  3. ARIXTRA [Concomitant]
     Indication: THROMBOSIS
     Route: 058
  4. PERANTIOL [Concomitant]
     Indication: PROPHYLAXIS
     Route: 048
  5. COTRIM [Concomitant]
     Indication: PROPHYLAXIS
     Route: 048

REACTIONS (2)
  - NAUSEA [None]
  - ACUTE VESTIBULAR SYNDROME [None]
